FAERS Safety Report 19693534 (Version 1)
Quarter: 2021Q3

REPORT INFORMATION
  Report Type: Report from Study
  Country: JP (occurrence: JP)
  Receive Date: 20210812
  Receipt Date: 20210812
  Transmission Date: 20211014
  Serious: Yes (Other)
  Sender: FDA-Public Use
  Company Number: JP-JNJFOC-20210810165

PATIENT

DRUGS (4)
  1. SIMPONI [Suspect]
     Active Substance: GOLIMUMAB
     Indication: COLITIS ULCERATIVE
     Dosage: WEEK 0
     Route: 058
  2. 6?MERCAPTOPURINE MONOHYDRATE [Concomitant]
     Active Substance: MERCAPTOPURINE
  3. SIMPONI [Suspect]
     Active Substance: GOLIMUMAB
     Route: 058
  4. AZATHIOPRINE. [Concomitant]
     Active Substance: AZATHIOPRINE

REACTIONS (25)
  - Listeria sepsis [Unknown]
  - Gait disturbance [Unknown]
  - Pneumonia bacterial [Unknown]
  - Jugular vein thrombosis [Unknown]
  - Therapeutic product effect decreased [Unknown]
  - Alopecia [Unknown]
  - Pneumonia [Unknown]
  - Rash [Unknown]
  - Herpes zoster [Unknown]
  - Diarrhoea [Unknown]
  - Malaise [Unknown]
  - Hepatic function abnormal [Unknown]
  - Pneumonia legionella [Unknown]
  - Melaena [Unknown]
  - Acne [Unknown]
  - Drug eruption [Unknown]
  - Anal abscess [Unknown]
  - Shock [Unknown]
  - Ocular hyperaemia [Unknown]
  - Angiopathy [Unknown]
  - Pain in extremity [Unknown]
  - Enteritis infectious [Unknown]
  - Interstitial lung disease [Unknown]
  - Infection [Unknown]
  - Nasopharyngitis [Unknown]
